FAERS Safety Report 5127305-3 (Version None)
Quarter: 2006Q4

REPORT INFORMATION
  Report Type: 
  Country: None (occurrence: None)
  Receive Date: 20061013
  Receipt Date: 20061005
  Transmission Date: 20070319
  Serious: Yes (Hospitalization)
  Sender: FDA-Public Use
  Company Number: DE-ABBOTT-06P-062-0346729-00

PATIENT
  Sex: Male
  Weight: 75 kg

DRUGS (9)
  1. KALETRA [Suspect]
     Indication: HIV INFECTION
     Dosage: 3 DOSES
     Route: 048
     Dates: start: 20060519
  2. TRUVADA [Suspect]
     Indication: HIV INFECTION
     Dosage: 1 DOSE
     Route: 048
     Dates: start: 20060519
  3. PROTHIPENDYL HYDROCHLORIDE [Concomitant]
     Indication: DEPRESSION
     Dosage: 10 DOSES
     Route: 048
  4. FUROSEMIDE [Concomitant]
     Indication: NEPHROLITHIASIS
     Dosage: 1 DOSE
     Route: 048
  5. ENDRONAX [Concomitant]
     Indication: DEPRESSION
     Route: 048
  6. TESTOSTERONE [Concomitant]
     Indication: BLOOD TESTOSTERONE DECREASED
     Route: 030
  7. FUSIDATE SODIUM [Concomitant]
     Indication: FOLLICULITIS
     Route: 061
     Dates: start: 20060711
  8. ACETAMINOPHEN [Concomitant]
     Indication: PYREXIA
     Route: 048
     Dates: start: 20060829
  9. DOXYCYCLINE [Concomitant]
     Indication: SINUSITIS
     Route: 065
     Dates: start: 20060908

REACTIONS (4)
  - ANEURYSM RUPTURED [None]
  - DIARRHOEA [None]
  - FOLLICULITIS [None]
  - SINUSITIS [None]
